FAERS Safety Report 5403716-3 (Version None)
Quarter: 2007Q3

REPORT INFORMATION
  Report Type: 
  Country: None (occurrence: None)
  Receive Date: 20070802
  Receipt Date: 20070723
  Transmission Date: 20080115
  Serious: Yes (Hospitalization)
  Sender: FDA-Public Use
  Company Number: US-JNJFOC-20070705582

PATIENT
  Sex: Male
  Weight: 99.79 kg

DRUGS (6)
  1. DURAGESIC-100 [Suspect]
     Indication: PAIN
     Route: 062
  2. AMITRIPTYLINE HCL [Concomitant]
     Route: 065
  3. TEMAZEPAM [Concomitant]
     Route: 048
  4. MELOXICAM [Concomitant]
     Route: 048
  5. NORCO [Concomitant]
     Route: 065
  6. SKELAXIN [Concomitant]
     Route: 065

REACTIONS (5)
  - CONVULSION [None]
  - DRUG WITHDRAWAL SYNDROME [None]
  - FALL [None]
  - INCORRECT DRUG ADMINISTRATION DURATION [None]
  - LOSS OF CONSCIOUSNESS [None]
